FAERS Safety Report 6534514-5 (Version None)
Quarter: 2010Q1

REPORT INFORMATION
  Report Type: 
  Country: None (occurrence: None)
  Receive Date: 20100112
  Receipt Date: 20091230
  Transmission Date: 20100710
  Serious: Yes (Other)
  Sender: FDA-Public Use
  Company Number: GB-PFIZER INC-2009315668

PATIENT
  Age: 81 Year
  Sex: Female

DRUGS (13)
  1. BETAMETHASONE BENZOATE [Suspect]
     Indication: EYE OPERATION
     Dosage: UNK
     Route: 047
     Dates: start: 20070502, end: 20070502
  2. FLURBIPROFEN [Suspect]
     Indication: PREOPERATIVE CARE
     Dosage: UNK
     Route: 031
     Dates: start: 20070502, end: 20070502
  3. LIDOCAINE 2% [Suspect]
     Indication: ANAESTHESIA
     Dosage: 2 ML, UNK
     Dates: start: 20070502, end: 20070502
  4. NEOMYCIN SULFATE [Suspect]
     Indication: EYE OPERATION
     Dosage: UNK
     Route: 047
     Dates: start: 20070502, end: 20070502
  5. POVIDONE-IODINE [Suspect]
     Indication: CATARACT OPERATION
     Dosage: UNK
     Route: 031
     Dates: start: 20070502, end: 20070502
  6. PHENYLEPHRINE [Suspect]
     Indication: CATARACT OPERATION
     Dosage: 1 DF, UNK
     Route: 047
     Dates: start: 20070502, end: 20070502
  7. ADRENALINE [Suspect]
     Indication: CATARACT OPERATION
     Dosage: 0.3 ML, UNK
     Route: 031
     Dates: start: 20070502, end: 20070502
  8. ADRENALINE [Suspect]
     Indication: EYE IRRIGATION
  9. CYCLOPENTOLATE [Suspect]
     Indication: CATARACT OPERATION
     Dosage: 1 DF, UNK
     Route: 031
     Dates: start: 20070502, end: 20070502
  10. HYALURONATE SODIUM [Suspect]
     Indication: CATARACT OPERATION
     Dosage: UNK
     Route: 047
     Dates: start: 20070502, end: 20070502
  11. OCUFEN [Suspect]
     Indication: PREOPERATIVE CARE
     Dosage: 1 DF, UNK
     Route: 047
     Dates: start: 20070502, end: 20070502
  12. VANCOMYCIN [Suspect]
     Indication: CATARACT OPERATION
     Dosage: 10 MG, UNK
     Dates: start: 20070502, end: 20070502
  13. VANCOMYCIN [Suspect]
     Indication: EYE IRRIGATION

REACTIONS (1)
  - TOXIC ANTERIOR SEGMENT SYNDROME [None]
